FAERS Safety Report 8469606-7 (Version None)
Quarter: 2012Q2

REPORT INFORMATION
  Report Type: 
  Country: None (occurrence: None)
  Receive Date: 20120626
  Receipt Date: 20120618
  Transmission Date: 20120825
  Serious: Yes (Hospitalization)
  Sender: FDA-Public Use
  Company Number: DE-PFIZER INC-2012150751

PATIENT
  Age: 71 Year
  Sex: Female

DRUGS (18)
  1. LYRICA [Suspect]
     Dosage: 100 MG, UNK
     Route: 048
     Dates: start: 20120208, end: 20120208
  2. PIPAMPERONE [Suspect]
     Dosage: 160 MG, DAILY
     Route: 048
     Dates: start: 20120207, end: 20120208
  3. PANTOPRAZOLE [Concomitant]
     Dosage: 40 MG, DAILY
     Dates: start: 20120205
  4. LYRICA [Suspect]
     Indication: HYPERTENSION
     Dosage: 50 MG, DAILY
     Route: 048
     Dates: start: 20120127, end: 20120207
  5. TORSEMIDE [Suspect]
     Dosage: 50 MG, DAILY
     Route: 048
  6. CLONAZEPAM [Concomitant]
     Dosage: 1 MG, DAILY
  7. GLIQUIDONE [Concomitant]
     Dosage: 15 MG, DAILY
  8. PROTHIPENDYL [Suspect]
     Dosage: 40 MG, SINGLE
     Route: 048
     Dates: start: 20120130, end: 20120130
  9. SIMVASTATIN [Concomitant]
     Dosage: 40 MG, DAILY
  10. BISOPROLOL FUMARATE [Suspect]
     Dosage: 2.5 MG, DAILY
     Route: 048
  11. LYRICA [Suspect]
     Dosage: 50 MG, UNK
     Route: 048
     Dates: start: 20120209
  12. PROTHIPENDYL [Suspect]
     Dosage: 80 MG, DAILY
     Route: 048
     Dates: start: 20120131
  13. MIRTAZAPINE [Suspect]
     Dosage: 15 MG, DAILY
     Route: 048
     Dates: start: 20120126
  14. ACETYLSALICYLIC ACID [Concomitant]
     Dosage: 100 MG, DAILY
  15. RAMIPRIL [Suspect]
     Dosage: 2.5 MG, DAILY
     Route: 048
  16. SEROQUEL [Suspect]
     Dosage: 100 MG, DAILY
     Route: 048
  17. VOLTAREN [Concomitant]
     Dosage: 150 MG, DAILY
     Dates: start: 20120205, end: 20120208
  18. MOVIPREP [Concomitant]
     Dosage: THREE BAGS
     Dates: start: 20120208, end: 20120208

REACTIONS (2)
  - DIZZINESS [None]
  - HYPOTONIA [None]
